FAERS Safety Report 12745322 (Version 1)
Quarter: 2016Q3

REPORT INFORMATION
  Report Type: Spontaneous
  Country: CH (occurrence: CH)
  Receive Date: 20160915
  Receipt Date: 20160915
  Transmission Date: 20161109
  Serious: Yes (Other)
  Sender: FDA-Public Use
  Company Number: PHHY2016CH117139

PATIENT
  Sex: Male

DRUGS (1)
  1. GLIVEC [Suspect]
     Active Substance: IMATINIB MESYLATE
     Indication: CHRONIC MYELOID LEUKAEMIA
     Dosage: 400 MG, QD
     Route: 065
     Dates: start: 20061229, end: 20160821

REACTIONS (16)
  - Organising pneumonia [Unknown]
  - Total lung capacity decreased [Unknown]
  - Cough [Unknown]
  - Pleuritic pain [Unknown]
  - C-reactive protein increased [Unknown]
  - Lung disorder [Unknown]
  - Pleural effusion [Unknown]
  - Blood pressure increased [Unknown]
  - Heart rate increased [Unknown]
  - Thrombophlebitis [Unknown]
  - Dyspnoea exertional [Unknown]
  - Pyrexia [Recovered/Resolved]
  - Lung infiltration [Unknown]
  - Chest pain [Unknown]
  - General physical health deterioration [Recovering/Resolving]
  - Conjunctivitis [Unknown]

NARRATIVE: CASE EVENT DATE: 201608
